FAERS Safety Report 10070106 (Version 2)
Quarter: 2014Q2

REPORT INFORMATION
  Report Type: Spontaneous
  Country: US (occurrence: US)
  Receive Date: 20140410
  Receipt Date: 20140410
  Transmission Date: 20141212
  Serious: Yes (Other)
  Sender: FDA-Public Use
  Company Number: US-ALEXION PHARMACEUTICALS INC.-A200900269

PATIENT
  Sex: Male

DRUGS (1)
  1. SOLIRIS [Suspect]
     Indication: PAROXYSMAL NOCTURNAL HAEMOGLOBINURIA
     Dosage: UNK
     Route: 042
     Dates: end: 20090106

REACTIONS (7)
  - Tonsil cancer [Unknown]
  - Transfusion [Unknown]
  - Radiotherapy [Recovered/Resolved]
  - Haemoptysis [Unknown]
  - Iron overload [Unknown]
  - Depressed mood [Unknown]
  - Fatigue [Unknown]
